FAERS Safety Report 18374335 (Version 3)
Quarter: 2020Q4

REPORT INFORMATION
  Report Type: Spontaneous
  Country: US (occurrence: US)
  Receive Date: 20201013
  Receipt Date: 20201029
  Transmission Date: 20210114
  Serious: Yes (Other)
  Sender: FDA-Public Use
  Company Number: US-STRIDES ARCOLAB LIMITED-2020SP012016

PATIENT
  Age: 5 Month
  Sex: Female

DRUGS (19)
  1. HYDROCORTISONE. [Suspect]
     Active Substance: HYDROCORTISONE
     Dosage: 6.6 MILLIGRAM/SQ. METER PER DAY (+/-1.2), MEAN
     Route: 065
  2. HYDROCORTISONE. [Suspect]
     Active Substance: HYDROCORTISONE
     Dosage: 4.3 MILLIGRAM PER DAY (+/-1.8), MEAN TOTAL DAILY DOSE
     Route: 065
  3. HYDROCORTISONE. [Suspect]
     Active Substance: HYDROCORTISONE
     Dosage: 12.2 MILLIGRAM/SQ. METER PER DAY, DIVIDED IN FOUR DOSES A DAY EVERY 6 HOURS STARTING AT 6 AM
     Route: 065
  4. HYDROCORTISONE. [Suspect]
     Active Substance: HYDROCORTISONE
     Indication: ADRENOGENITAL SYNDROME
     Dosage: 1.3 MILLIGRAM, TID (18.7 MG/M2/DAY) 2 MG/ML SUSPENSION
     Route: 065
  5. HYDROCORTISONE. [Suspect]
     Active Substance: HYDROCORTISONE
     Dosage: 10 MILLIGRAM TABLET IN 10ML WATER
     Route: 048
  6. HYDROCORTISONE. [Suspect]
     Active Substance: HYDROCORTISONE
     Dosage: 7.1 MILLIGRAM/SQ. METER PER DAY, DIVIDED IN FOUR DOSES A DAY EVERY 6 HOURS STARTING AT 6 AM
     Route: 065
  7. HYDROCORTISONE. [Suspect]
     Active Substance: HYDROCORTISONE
     Dosage: UNK, CHANGE IN THE NOMINAL DOSE
     Route: 065
  8. FLUDROCORTISONE [Concomitant]
     Active Substance: FLUDROCORTISONE
     Indication: ADRENOGENITAL SYNDROME
     Dosage: 0.1 MILLIGRAM PER DAY
     Route: 065
  9. FLUDROCORTISONE [Concomitant]
     Active Substance: FLUDROCORTISONE
     Indication: RENAL SALT-WASTING SYNDROME
     Dosage: 0.05 MILLIGRAM PER DAY
     Route: 065
  10. SODIUM CHLORIDE. [Concomitant]
     Active Substance: SODIUM CHLORIDE
     Indication: RENAL SALT-WASTING SYNDROME
     Dosage: 10.2 MILLIEQUIVALENT PER KILOGRAM, QD
     Route: 065
  11. HYDROCORTISONE. [Suspect]
     Active Substance: HYDROCORTISONE
     Dosage: 5.8 MILLIGRAM/SQ. METER PER DAY, DIVIDED IN FOUR DOSES A DAY EVERY 6 HOURS STARTING AT 6 AM
     Route: 065
  12. SODIUM CHLORIDE. [Concomitant]
     Active Substance: SODIUM CHLORIDE
     Indication: ADRENOGENITAL SYNDROME
  13. CAPTOPRIL. [Concomitant]
     Active Substance: CAPTOPRIL
     Indication: PRODUCT USED FOR UNKNOWN INDICATION
     Dosage: 15 MILLIGRAM, QD
     Route: 065
  14. HYDROCORTISONE. [Suspect]
     Active Substance: HYDROCORTISONE
     Indication: RENAL SALT-WASTING SYNDROME
     Dosage: 1.2 MILLIGRAM, TID (12.6 MG/M2/DAY)
     Route: 065
  15. HYDROCORTISONE. [Suspect]
     Active Substance: HYDROCORTISONE
     Dosage: 6.4 MILLIGRAM/SQ. METER PER DAY (+/-1.2), MEAN
     Route: 065
  16. HYDROCORTISONE. [Suspect]
     Active Substance: HYDROCORTISONE
     Dosage: 7.9 MILLIGRAM/SQ. METER PER DAY, DIVIDED IN FOUR DOSES A DAY EVERY 6 HOURS STARTING AT 6 AM
     Route: 065
  17. HYDROCORTISONE. [Suspect]
     Active Substance: HYDROCORTISONE
     Dosage: 8.1 MILLIGRAM/SQ. METER (2 MG HYDROCORTISONE AT 6 AM, 1.75 MG AT NOON, 1.5 MG AT 6 PM, AND 2 MG AT M
     Route: 048
  18. HYDROCORTISONE. [Suspect]
     Active Substance: HYDROCORTISONE
     Dosage: 5 MILLIGRAM TABLET IN 5ML WATER, USING A SYRINGE
     Route: 048
  19. HYDROCORTISONE. [Suspect]
     Active Substance: HYDROCORTISONE
     Dosage: 6.5 MILLIGRAM/SQ. METER PER DAY, DIVIDED IN FOUR DOSES
     Route: 065

REACTIONS (12)
  - Cushing^s syndrome [Recovered/Resolved]
  - Body mass index increased [Recovered/Resolved]
  - Gastric ulcer [Unknown]
  - Affect lability [Unknown]
  - Hypothalamic pituitary adrenal axis suppression [Recovered/Resolved]
  - Intentional product misuse [Unknown]
  - Hirsutism [Recovered/Resolved]
  - Hypertension [Recovered/Resolved]
  - Asthenia [Unknown]
  - Cushingoid [Recovered/Resolved]
  - Wrong technique in product usage process [Unknown]
  - Growth retardation [Recovered/Resolved]
